FAERS Safety Report 11774048 (Version 1)
Quarter: 2015Q4

REPORT INFORMATION
  Report Type: Spontaneous
  Country: US (occurrence: US)
  Receive Date: 20151124
  Receipt Date: 20151124
  Transmission Date: 20160304
  Serious: No
  Sender: FDA-Public Use
  Company Number: US-PERNIX THERAPEUTICS-2015PT000199

PATIENT

DRUGS (3)
  1. VICODIN [Concomitant]
     Active Substance: ACETAMINOPHEN\HYDROCODONE BITARTRATE
     Indication: PAIN
     Dosage: UNK, AS NEEDED
  2. LISINOPRIL. [Concomitant]
     Active Substance: LISINOPRIL
     Dosage: UNK
  3. ZOHYDRO [Suspect]
     Active Substance: HYDROCODONE BITARTRATE
     Indication: SPINAL PAIN
     Dosage: 20 MG, TWICE DAILY
     Route: 048
     Dates: start: 20150901

REACTIONS (1)
  - Oedema peripheral [Unknown]

NARRATIVE: CASE EVENT DATE: 201509
